FAERS Safety Report 21988173 (Version 1)
Quarter: 2023Q1

REPORT INFORMATION
  Report Type: Spontaneous
  Country: US (occurrence: US)
  Receive Date: 20230214
  Receipt Date: 20230214
  Transmission Date: 20230418
  Serious: No
  Sender: FDA-Public Use
  Company Number: US-AUROBINDO-AUR-APL-2022-007042

PATIENT
  Age: 68 Year
  Sex: Female

DRUGS (2)
  1. LORAZEPAM [Suspect]
     Active Substance: LORAZEPAM
     Indication: Spinal cord disorder
     Dosage: UNK
     Route: 065
  2. LORAZEPAM [Suspect]
     Active Substance: LORAZEPAM
     Indication: Muscle spasms

REACTIONS (3)
  - Withdrawal syndrome [Recovered/Resolved]
  - Diarrhoea [Unknown]
  - Drug ineffective [Not Recovered/Not Resolved]
